FAERS Safety Report 8256394-2 (Version None)
Quarter: 2012Q2

REPORT INFORMATION
  Report Type: 
  Country: None (occurrence: None)
  Receive Date: 20120403
  Receipt Date: 20120321
  Transmission Date: 20120825
  Serious: Yes (Congenital Anomaly, Other)
  Sender: FDA-Public Use
  Company Number: DK-ELI_LILLY_AND_COMPANY-DK201108002385

PATIENT
  Weight: 15 kg

DRUGS (2)
  1. ZYPREXA [Suspect]
     Dosage: 10 MG, QD
     Route: 064
     Dates: start: 20070701, end: 20080416
  2. ZYPREXA [Suspect]
     Dosage: 10 MG, QD
     Route: 064
     Dates: start: 20070701, end: 20080416

REACTIONS (5)
  - APGAR SCORE [None]
  - MENTAL RETARDATION [None]
  - FOETAL EXPOSURE DURING PREGNANCY [None]
  - AUTISM [None]
  - FOETAL HEART RATE ABNORMAL [None]
